FAERS Safety Report 5818238-5 (Version None)
Quarter: 2008Q3

REPORT INFORMATION
  Report Type: 
  Country: None (occurrence: None)
  Receive Date: 20080716
  Receipt Date: 20080703
  Transmission Date: 20090109
  Serious: No
  Sender: FDA-Public Use
  Company Number: 2008-180149-NL

PATIENT
  Age: 66 Year
  Sex: Male

DRUGS (4)
  1. MIRTAZAPINE [Suspect]
     Indication: MAJOR DEPRESSION
     Dosage: 15 MG QD/15 MG ORAL
     Route: 048
     Dates: start: 20060602, end: 20080623
  2. MIRTAZAPINE [Suspect]
     Indication: MAJOR DEPRESSION
     Dosage: 15 MG QD/15 MG ORAL
     Route: 048
     Dates: start: 20080624
  3. TRIAZOLAM [Suspect]
     Dosage: DF
  4. ALPRAZOLAM [Suspect]
     Dosage: DF
     Dates: start: 20080602

REACTIONS (6)
  - AKATHISIA [None]
  - BLOOD PRESSURE DECREASED [None]
  - GASTROINTESTINAL DISORDER [None]
  - HEART RATE INCREASED [None]
  - THERAPEUTIC RESPONSE DELAYED [None]
  - THIRST [None]
